FAERS Safety Report 5301332-5 (Version None)
Quarter: 2007Q2

REPORT INFORMATION
  Report Type: 
  Country: None (occurrence: None)
  Receive Date: 20070418
  Receipt Date: 20070406
  Transmission Date: 20071010
  Serious: Yes (Other)
  Sender: FDA-Public Use
  Company Number: US-PFIZER INC-2007028731

PATIENT
  Sex: Female
  Weight: 58.5 kg

DRUGS (7)
  1. CHANTIX [Suspect]
     Indication: SMOKING CESSATION THERAPY
     Route: 048
  2. PREVPAC [Interacting]
     Indication: GASTRIC INFECTION
  3. LEVOTHYROXINE SODIUM [Concomitant]
     Route: 048
  4. ZOCOR [Concomitant]
     Route: 048
  5. CARAFATE [Concomitant]
     Route: 048
  6. ALBUTEROL [Concomitant]
  7. FORADIL [Concomitant]

REACTIONS (9)
  - DRUG INTERACTION [None]
  - EMPHYSEMA [None]
  - FALL [None]
  - FEELING ABNORMAL [None]
  - GASTRIC INFECTION [None]
  - MALAISE [None]
  - POLYP [None]
  - TREMOR [None]
  - VERTIGO [None]
